FAERS Safety Report 9836525 (Version 1)
Quarter: 2014Q1

REPORT INFORMATION
  Report Type: Report from Study
  Country: BR (occurrence: BR)
  Receive Date: 20140123
  Receipt Date: 20140123
  Transmission Date: 20141002
  Serious: Yes (Other)
  Sender: FDA-Public Use
  Company Number: BR-ROCHE-1334313

PATIENT
  Sex: Female
  Weight: 90 kg

DRUGS (5)
  1. MABTHERA [Suspect]
     Indication: RHEUMATOID ARTHRITIS
     Dosage: LATEST INFUSION ON 12/DEC/2011
     Route: 065
     Dates: start: 20100701
  2. FOLIC ACID [Concomitant]
  3. VENLAFAXINE [Concomitant]
  4. RIVOTRIL [Concomitant]
     Route: 065
  5. TIBOLONA [Concomitant]

REACTIONS (2)
  - Thyroid disorder [Not Recovered/Not Resolved]
  - Weight increased [Not Recovered/Not Resolved]
